FAERS Safety Report 18862104 (Version 4)
Quarter: 2021Q1

REPORT INFORMATION
  Report Type: Spontaneous
  Country: JP (occurrence: JP)
  Receive Date: 20210209
  Receipt Date: 20210305
  Transmission Date: 20210420
  Serious: Yes (Life-Threatening, Other)
  Sender: FDA-Public Use
  Company Number: JP-TAKEDA-2021TJP002553

PATIENT
  Age: 33 Year
  Sex: Female

DRUGS (6)
  1. LENDORMIN [Suspect]
     Active Substance: BROTIZOLAM
     Indication: INSOMNIA
     Dosage: 5 MILLIGRAM
     Route: 048
     Dates: start: 20210125, end: 20210125
  2. LENDORMIN [Suspect]
     Active Substance: BROTIZOLAM
     Indication: DEPRESSION SUICIDAL
     Dosage: 0.25 MILLIGRAM, QD
     Route: 048
     Dates: start: 20201218, end: 20210124
  3. LUNABELL [Concomitant]
     Active Substance: ETHINYL ESTRADIOL\NORETHINDRONE
     Indication: CONTRACEPTION
     Dosage: 1.02 MILLIGRAM, QD
     Route: 048
  4. OLANZAPINE. [Concomitant]
     Active Substance: OLANZAPINE
     Indication: DEPRESSION SUICIDAL
     Dosage: 5 MILLIGRAM, QD
     Route: 048
     Dates: start: 20201218, end: 20210125
  5. TRINTELLIX [Suspect]
     Active Substance: VORTIOXETINE HYDROBROMIDE
     Indication: DEPRESSION SUICIDAL
     Dosage: 10 MILLIGRAM, QD
     Route: 048
     Dates: start: 20210122
  6. MEILAX [Concomitant]
     Active Substance: ETHYL LOFLAZEPATE
     Indication: DEPRESSION SUICIDAL
     Dosage: 1 MILLIGRAM, BID
     Route: 048
     Dates: start: 20201218

REACTIONS (3)
  - Ligament sprain [Not Recovered/Not Resolved]
  - Suicide attempt [Unknown]
  - Intentional overdose [Unknown]

NARRATIVE: CASE EVENT DATE: 20210125
